FAERS Safety Report 17256852 (Version 6)
Quarter: 2020Q1

REPORT INFORMATION
  Report Type: Report from Study
  Country: JP (occurrence: JP)
  Receive Date: 20200110
  Receipt Date: 20200205
  Transmission Date: 20200409
  Serious: Yes (Hospitalization)
  Sender: FDA-Public Use
  Company Number: JP-EISAI MEDICAL RESEARCH-EC-2020-068267

PATIENT
  Age: 70 Year
  Sex: Female
  Weight: 49 kg

DRUGS (14)
  1. LENVATINIB [Suspect]
     Active Substance: LENVATINIB
     Indication: NON-SMALL CELL LUNG CANCER METASTATIC
     Route: 048
     Dates: start: 20191205
  2. PEMBROLIZUMAB. [Suspect]
     Active Substance: PEMBROLIZUMAB
     Indication: NON-SMALL CELL LUNG CANCER METASTATIC
     Route: 041
     Dates: start: 20191205, end: 20191205
  3. AZILSARTAN [Concomitant]
     Active Substance: AZILSARTAN KAMEDOXOMIL
     Dates: start: 20191227
  4. FAMOTIDINE. [Concomitant]
     Active Substance: FAMOTIDINE
     Dates: start: 20200102, end: 20200102
  5. BETAHISTINE MESYLATE [Concomitant]
     Active Substance: BETAHISTINE MESILATE
     Dates: start: 20200202
  6. ATORVASTATIN CALCIUM. [Concomitant]
     Active Substance: ATORVASTATIN CALCIUM
     Dates: start: 20191117
  7. SENNOSIDES. [Concomitant]
     Active Substance: SENNOSIDES
     Dates: start: 20191226
  8. PEMBROLIZUMAB. [Suspect]
     Active Substance: PEMBROLIZUMAB
     Route: 041
     Dates: start: 20191225
  9. DIMEMORFAN PHOSPHATE [Concomitant]
     Active Substance: DIMEMORFAN PHOSPHATE
     Dates: start: 20191119
  10. INDOMETHACIN. [Concomitant]
     Active Substance: INDOMETHACIN
     Dates: start: 201911
  11. BOFU-TSUSHO-SAN [Concomitant]
     Active Substance: HERBALS
     Dates: start: 201911
  12. AMLODIPINE BESYLATE. [Concomitant]
     Active Substance: AMLODIPINE BESYLATE
     Dates: start: 20191117
  13. GATIFLOXACIN. [Concomitant]
     Active Substance: GATIFLOXACIN
     Dates: start: 20191224
  14. METOCLOPRAMIDE. [Concomitant]
     Active Substance: METOCLOPRAMIDE
     Dates: start: 20200202

REACTIONS (1)
  - Meningitis aseptic [Not Recovered/Not Resolved]

NARRATIVE: CASE EVENT DATE: 20200108
